FAERS Safety Report 8412250-8 (Version None)
Quarter: 2012Q2

REPORT INFORMATION
  Report Type: 
  Country: None (occurrence: None)
  Receive Date: 20120605
  Receipt Date: 20120510
  Transmission Date: 20120825
  Serious: No
  Sender: FDA-Public Use
  Company Number: US-AMGEN-USASP2012029650

PATIENT
  Age: 63 Year
  Sex: Female

DRUGS (1)
  1. ENBREL [Suspect]
     Indication: RHEUMATOID ARTHRITIS
     Dosage: 50 MG, QWK
     Dates: start: 20120430

REACTIONS (6)
  - MALAISE [None]
  - HEADACHE [None]
  - POLLAKIURIA [None]
  - NAUSEA [None]
  - HOT FLUSH [None]
  - CHILLS [None]
